FAERS Safety Report 4664125-8 (Version None)
Quarter: 2005Q2

REPORT INFORMATION
  Report Type: 
  Country: None (occurrence: None)
  Receive Date: 20050516
  Receipt Date: 20050516
  Transmission Date: 20051028
  Serious: Yes (Other)
  Sender: FDA-Public Use
  Company Number: None

PATIENT
  Age: 58 Year
  Sex: Male
  Weight: 74 kg

DRUGS (2)
  1. CAPECITABINE   500MG [Suspect]
     Indication: NEOPLASM MALIGNANT
     Dosage: 1500MG   BID X 14 DAYS   ORAL
     Route: 048
     Dates: start: 20050302, end: 20050302
  2. CAPECITABINE    150MG [Suspect]
     Dosage: 150MG   QAM X 14 DAYS   ORAL
     Route: 048

REACTIONS (1)
  - DIARRHOEA [None]
